FAERS Safety Report 9190842 (Version 3)
Quarter: 2013Q2

REPORT INFORMATION
  Report Type: Spontaneous
  Country: US (occurrence: US)
  Receive Date: 20130326
  Receipt Date: 20130617
  Transmission Date: 20140414
  Serious: Yes (Other)
  Sender: FDA-Public Use
  Company Number: US-GLAXOSMITHKLINE-A1017112A

PATIENT
  Age: 28 Year
  Sex: Female

DRUGS (3)
  1. FLOLAN [Suspect]
     Indication: PULMONARY ARTERIAL HYPERTENSION
     Dosage: 36NGKM CONTINUOUS
     Route: 042
     Dates: start: 20081001
  2. REVATIO [Concomitant]
  3. COUMADIN [Concomitant]

REACTIONS (4)
  - Lower respiratory tract infection [Unknown]
  - Bronchitis [Unknown]
  - Swelling [Unknown]
  - Device related infection [Unknown]
